FAERS Safety Report 23912641 (Version 1)
Quarter: 2024Q2

REPORT INFORMATION
  Report Type: Other
  Country: DE (occurrence: DE)
  Receive Date: 20240529
  Receipt Date: 20240529
  Transmission Date: 20240715
  Serious: Yes (Life-Threatening, Hospitalization)
  Sender: FDA-Public Use
  Company Number: DE-OrBion Pharmaceuticals Private Limited-2157507

PATIENT
  Age: 18 Year
  Sex: Female
  Weight: 55 kg

DRUGS (1)
  1. VENLAFAXINE HYDROCHLORIDE [Suspect]
     Active Substance: VENLAFAXINE HYDROCHLORIDE
     Indication: Intentional overdose
     Route: 048

REACTIONS (25)
  - Cardiac arrest [Recovered/Resolved]
  - Intentional overdose [Unknown]
  - Antipsychotic drug level above therapeutic [Unknown]
  - Toxicity to various agents [Unknown]
  - Coagulopathy [Recovered/Resolved]
  - Mydriasis [Recovered/Resolved]
  - Circulatory collapse [Recovered/Resolved]
  - Lactic acidosis [Recovered/Resolved]
  - Seizure [Recovered/Resolved]
  - Hypoglycaemia [Recovered/Resolved]
  - Vasospasm [Recovered/Resolved]
  - Ischaemia [Recovered/Resolved]
  - Compartment syndrome [Recovered/Resolved]
  - Harlequin skin reaction [Recovered/Resolved]
  - Intestinal perforation [Recovered/Resolved]
  - Acute abdomen [Recovered/Resolved]
  - Hypotension [Recovered/Resolved]
  - Sinus tachycardia [Recovered/Resolved]
  - Stress cardiomyopathy [Recovered/Resolved]
  - Rhabdomyolysis [Recovered/Resolved]
  - Coma scale abnormal [Recovered/Resolved]
  - Multiple organ dysfunction syndrome [Recovered/Resolved]
  - Acute respiratory distress syndrome [Recovered/Resolved]
  - Hepatic failure [Recovered/Resolved]
  - Renal failure [Recovered/Resolved]
